FAERS Safety Report 8431511-X (Version None)
Quarter: 2012Q2

REPORT INFORMATION
  Report Type: 
  Country: None (occurrence: None)
  Receive Date: 20120613
  Receipt Date: 20120604
  Transmission Date: 20120825
  Serious: Yes (Hospitalization)
  Sender: FDA-Public Use
  Company Number: JP-JNJFOC-20120604222

PATIENT
  Age: 17 Year
  Sex: Female
  Weight: 66 kg

DRUGS (10)
  1. MIYA BM [Concomitant]
     Indication: COLITIS ULCERATIVE
     Dosage: DOSE REPORTED AS ^4TAB^
     Route: 048
  2. MUCOSTA [Concomitant]
     Indication: PROPHYLAXIS
     Route: 048
  3. REMICADE [Suspect]
     Route: 042
     Dates: start: 20111210
  4. REMICADE [Suspect]
     Route: 042
     Dates: start: 20111008
  5. PENTASA [Concomitant]
     Indication: COLITIS ULCERATIVE
     Route: 048
  6. RABEPRAZOLE SODIUM [Concomitant]
     Indication: PROPHYLAXIS
     Route: 048
  7. REMICADE [Suspect]
     Indication: COLITIS ULCERATIVE
     Route: 042
     Dates: start: 20110926
  8. REMICADE [Suspect]
     Route: 042
     Dates: start: 20120114
  9. REMICADE [Suspect]
     Dosage: 78 = TOTAL NUMBER OF INFUSIONS (ALSO REPORTED AS 6 INFUSIONS, CONFLICTING INFORMATION)
     Route: 042
     Dates: start: 20120303
  10. REMICADE [Suspect]
     Route: 042
     Dates: start: 20111105

REACTIONS (1)
  - COLITIS ULCERATIVE [None]
